FAERS Safety Report 5999913-9 (Version None)
Quarter: 2008Q4

REPORT INFORMATION
  Report Type: 
  Country: None (occurrence: None)
  Receive Date: 20081215
  Receipt Date: 20081205
  Transmission Date: 20090506
  Serious: Yes (Hospitalization)
  Sender: FDA-Public Use
  Company Number: PHEH2008US10859

PATIENT
  Age: 37 Year
  Sex: Female
  Weight: 68.027 kg

DRUGS (2)
  1. GLEEVEC [Suspect]
     Indication: DERMATOFIBROSARCOMA
     Dosage: 400 MG, BID
     Route: 048
     Dates: start: 20081007, end: 20081110
  2. TOPROL-XL [Concomitant]
     Dosage: 25 MG, UNK

REACTIONS (1)
  - ILEITIS [None]
